FAERS Safety Report 6890968-6 (Version None)
Quarter: 2010Q3

REPORT INFORMATION
  Report Type: 
  Country: None (occurrence: None)
  Receive Date: 20100731
  Receipt Date: 20090422
  Transmission Date: 20110219
  Serious: No
  Sender: FDA-Public Use
  Company Number: US-PFIZER INC-2009171613

PATIENT
  Sex: Male
  Weight: 81.633 kg

DRUGS (8)
  1. LIPITOR [Suspect]
     Dosage: 10 MG, 1X/DAY
     Dates: start: 20081101
  2. LORTAB [Concomitant]
     Dosage: UNK
  3. SOMA [Concomitant]
     Dosage: UNK
  4. ATIVAN [Concomitant]
     Dosage: UNK
  5. PLAVIX [Concomitant]
     Dosage: UNK
  6. ATENOLOL [Concomitant]
     Dosage: UNK
  7. ASPIRIN [Concomitant]
     Dosage: UNK
  8. WARFARIN SODIUM [Concomitant]
     Dosage: UNK

REACTIONS (5)
  - APATHY [None]
  - ARTHRALGIA [None]
  - ASTHENIA [None]
  - BACK PAIN [None]
  - PAIN IN EXTREMITY [None]
